FAERS Safety Report 12765902 (Version 1)
Quarter: 2016Q3

REPORT INFORMATION
  Report Type: Spontaneous
  Country: US (occurrence: US)
  Receive Date: 20160920
  Receipt Date: 20160920
  Transmission Date: 20161109
  Serious: Yes (Other)
  Sender: FDA-Public Use
  Company Number: None

PATIENT
  Age: 38 Year
  Sex: Male
  Weight: 63 kg

DRUGS (2)
  1. ROGAINE [Concomitant]
     Active Substance: MINOXIDIL
  2. FINASTERIDE. [Suspect]
     Active Substance: FINASTERIDE
     Indication: ANDROGENETIC ALOPECIA
     Route: 048
     Dates: start: 20160802, end: 20160809

REACTIONS (5)
  - Apathy [None]
  - Activities of daily living impaired [None]
  - Memory impairment [None]
  - Abdominal pain lower [None]
  - Testicular pain [None]

NARRATIVE: CASE EVENT DATE: 20160807
